FAERS Safety Report 5868257-8 (Version None)
Quarter: 2008Q3

REPORT INFORMATION
  Report Type: 
  Country: None (occurrence: None)
  Receive Date: 20080902
  Receipt Date: 20080819
  Transmission Date: 20090109
  Serious: Yes (Death, Hospitalization)
  Sender: FDA-Public Use
  Company Number: JP-PFIZER INC-2008064067

PATIENT
  Age: 48 Year
  Sex: Female

DRUGS (4)
  1. REVATIO [Suspect]
     Indication: PULMONARY HYPERTENSION
     Route: 048
     Dates: start: 20080702, end: 20080703
  2. TRACLEER [Suspect]
     Route: 048
     Dates: start: 20080702, end: 20080702
  3. PROCYLIN [Suspect]
     Route: 048
  4. LAXOBERON [Concomitant]

REACTIONS (1)
  - BLOOD PRESSURE DECREASED [None]
